FAERS Safety Report 10020791 (Version 1)
Quarter: 2014Q1

REPORT INFORMATION
  Report Type: Spontaneous
  Country: EE (occurrence: EE)
  Receive Date: 20140319
  Receipt Date: 20140319
  Transmission Date: 20141002
  Serious: Yes (Life-Threatening)
  Sender: FDA-Public Use
  Company Number: EE-ROCHE-1365135

PATIENT
  Age: 36 Year
  Sex: Female
  Weight: 57.5 kg

DRUGS (3)
  1. ROACTEMRA [Suspect]
     Indication: RHEUMATOID ARTHRITIS
     Route: 042
     Dates: start: 201012, end: 20140121
  2. MEDROL [Concomitant]
     Indication: RHEUMATOID ARTHRITIS
     Route: 048
  3. BETALOC ZOK [Concomitant]
     Indication: HYPERTENSION
     Route: 048

REACTIONS (2)
  - Antiphospholipid syndrome [Not Recovered/Not Resolved]
  - Thrombosis [Recovered/Resolved]
